FAERS Safety Report 9860005 (Version 1)
Quarter: 2014Q1

REPORT INFORMATION
  Report Type: Spontaneous
  Country: JP (occurrence: JP)
  Receive Date: 20140131
  Receipt Date: 20140131
  Transmission Date: 20141002
  Serious: Yes (Other)
  Sender: FDA-Public Use
  Company Number: JP-GILEAD-2014-0093250

PATIENT
  Age: 70 Year
  Sex: Female

DRUGS (4)
  1. AMBRISENTAN [Suspect]
     Indication: PULMONARY HYPERTENSION
     Dosage: 7.5MG PER DAY
     Route: 048
     Dates: start: 20120927, end: 20130410
  2. AMBRISENTAN [Suspect]
     Dosage: 5MG PER DAY
     Route: 048
     Dates: start: 20110512, end: 20110622
  3. AMBRISENTAN [Suspect]
     Dosage: 10MG PER DAY
     Route: 048
     Dates: start: 20110623, end: 20120926
  4. AMBRISENTAN [Suspect]
     Dosage: 5MG PER DAY
     Route: 048
     Dates: start: 20130411, end: 20130523

REACTIONS (1)
  - Interstitial lung disease [Not Recovered/Not Resolved]
